FAERS Safety Report 4496741-0 (Version None)
Quarter: 2004Q4

REPORT INFORMATION
  Report Type: 
  Country: None (occurrence: None)
  Receive Date: 20041109
  Receipt Date: 20040702
  Transmission Date: 20050328
  Serious: Yes (Other)
  Sender: FDA-Public Use
  Company Number: US-ROCHE-373500

PATIENT
  Age: 65 Year
  Sex: Female

DRUGS (9)
  1. PEGASYS [Suspect]
     Indication: HEPATITIS C
     Route: 058
     Dates: start: 20040123
  2. COPEGUS [Suspect]
     Indication: HEPATITIS C
     Route: 048
     Dates: start: 20040123
  3. FOSAMAX [Concomitant]
     Indication: OSTEOPENIA
     Route: 048
     Dates: start: 20030615
  4. FOLIC ACID [Concomitant]
     Indication: DRUG USE FOR UNKNOWN INDICATION
     Route: 048
  5. TYLENOL [Concomitant]
     Indication: PAIN
     Route: 065
  6. BENADRYL [Concomitant]
     Indication: INSOMNIA
     Route: 065
  7. PEPTO BISMOL [Concomitant]
     Indication: DRUG USE FOR UNKNOWN INDICATION
     Route: 065
  8. IMODIUM [Concomitant]
     Indication: DRUG USE FOR UNKNOWN INDICATION
     Route: 065
  9. OTC MEDICATIONS [Concomitant]
     Dosage: MULTIVITAMINS WITHOUT IRON, BIOTIN, VITAMIN E, FISH OIL CAPSULES AND CALCIUM CARBONATE DAILY.

REACTIONS (18)
  - ANAEMIA [None]
  - ASTHENIA [None]
  - BLOOD TRIGLYCERIDES INCREASED [None]
  - DIARRHOEA [None]
  - FATIGUE [None]
  - IMPAIRED HEALING [None]
  - MOUTH ULCERATION [None]
  - NEUTROPHIL COUNT DECREASED [None]
  - OEDEMA MOUTH [None]
  - ORAL SOFT TISSUE DISORDER [None]
  - OSTEONECROSIS [None]
  - PALATAL DISORDER [None]
  - PRURITUS [None]
  - RASH [None]
  - SCAB [None]
  - THERMAL BURN [None]
  - VAGINITIS [None]
  - WHITE BLOOD CELL COUNT DECREASED [None]
